FAERS Safety Report 4439923-6 (Version None)
Quarter: 2004Q3

REPORT INFORMATION
  Report Type: 
  Country: None (occurrence: None)
  Receive Date: 20040831
  Receipt Date: 20040719
  Transmission Date: 20050211
  Serious: No
  Sender: FDA-Public Use
  Company Number: 238892

PATIENT
  Age: 70 Year
  Sex: Female

DRUGS (2)
  1. ACTRAPID (INSULIN HUMAN) SOLUTION FOR INJECTION [Suspect]
     Indication: ILL-DEFINED DISORDER
  2. PROTAPHANE(INSULIN HUMAN) SUSPENSION FOR INJECTION [Suspect]
     Indication: ILL-DEFINED DISORDER

REACTIONS (2)
  - HEART VALVE REPLACEMENT [None]
  - MYOCARDIAL INFARCTION [None]
